FAERS Safety Report 23791850 (Version 1)
Quarter: 2024Q2

REPORT INFORMATION
  Report Type: Spontaneous
  Country: US (occurrence: US)
  Receive Date: 20240429
  Receipt Date: 20240429
  Transmission Date: 20240715
  Serious: No
  Sender: FDA-Public Use
  Company Number: US-SA-SAC20240423000150

PATIENT
  Sex: Female

DRUGS (2)
  1. DUPIXENT [Suspect]
     Active Substance: DUPILUMAB
     Dosage: 300 MG, QOW
     Route: 058
  2. OTEZLA [Concomitant]
     Active Substance: APREMILAST

REACTIONS (2)
  - Rash [Not Recovered/Not Resolved]
  - Product dose omission issue [Not Recovered/Not Resolved]
